FAERS Safety Report 11581107 (Version 1)
Quarter: 2015Q4

REPORT INFORMATION
  Report Type: Spontaneous
  Country: US (occurrence: US)
  Receive Date: 20151001
  Receipt Date: 20151001
  Transmission Date: 20160304
  Serious: No
  Sender: FDA-Public Use
  Company Number: US-ROCHE-670404

PATIENT
  Age: 41 Year
  Sex: Female

DRUGS (6)
  1. COPEGUS [Suspect]
     Active Substance: RIBAVIRIN
     Indication: HEPATITIS C
     Dosage: DIVIDED DOSES. FORM: PILL
     Route: 048
  2. COPEGUS [Suspect]
     Active Substance: RIBAVIRIN
     Dosage: DIVIDED DOSES; 4 PILLS
     Route: 048
  3. PEGASYS [Suspect]
     Active Substance: PEGINTERFERON ALFA-2A
     Route: 058
  4. COPEGUS [Suspect]
     Active Substance: RIBAVIRIN
     Dosage: FORM: PILL
     Route: 048
  5. PEGASYS [Suspect]
     Active Substance: PEGINTERFERON ALFA-2A
     Indication: HEPATITIS C
     Dosage: PRE-FILLED SYRINGE
     Route: 058
  6. XANAX [Concomitant]
     Active Substance: ALPRAZOLAM
     Indication: DEPRESSION
     Route: 065

REACTIONS (24)
  - Influenza like illness [Unknown]
  - Injection site reaction [Not Recovered/Not Resolved]
  - Muscle spasms [Unknown]
  - Chills [Not Recovered/Not Resolved]
  - Malaise [Unknown]
  - Pain [Unknown]
  - Paraesthesia [Not Recovered/Not Resolved]
  - Alopecia [Unknown]
  - Insomnia [Unknown]
  - Injection site erythema [Unknown]
  - Sinusitis [Unknown]
  - Bronchitis [Unknown]
  - Coordination abnormal [Unknown]
  - Menstruation delayed [Not Recovered/Not Resolved]
  - Abdominal pain upper [Unknown]
  - Hyperhidrosis [Not Recovered/Not Resolved]
  - Chromaturia [Unknown]
  - Ear infection [Unknown]
  - Chronic obstructive pulmonary disease [Unknown]
  - Hypoaesthesia [Unknown]
  - Wrong technique in product usage process [Unknown]
  - Nausea [Recovering/Resolving]
  - Depression [Unknown]
  - Anaemia [Not Recovered/Not Resolved]

NARRATIVE: CASE EVENT DATE: 20091111
